FAERS Safety Report 5606671-6 (Version None)
Quarter: 2008Q1

REPORT INFORMATION
  Report Type: 
  Country: None (occurrence: None)
  Receive Date: 20080129
  Receipt Date: 20080122
  Transmission Date: 20080703
  Serious: Yes (Death)
  Sender: FDA-Public Use
  Company Number: US-KINGPHARMUSA00001-K200800097

PATIENT

DRUGS (5)
  1. MENEST [Suspect]
     Route: 048
  2. CARBON MONOXIDE [Suspect]
  3. ZOLPIDEM [Suspect]
     Route: 048
  4. ALPRAZOLAM [Suspect]
     Route: 048
  5. ESCITALOPRAM [Suspect]
     Route: 048

REACTIONS (1)
  - COMPLETED SUICIDE [None]
